FAERS Safety Report 16712250 (Version 1)
Quarter: 2019Q3

REPORT INFORMATION
  Report Type: Spontaneous
  Country: IT (occurrence: IT)
  Receive Date: 20190816
  Receipt Date: 20190816
  Transmission Date: 20191004
  Serious: Yes (Hospitalization)
  Sender: FDA-Public Use
  Company Number: IT-ALLERGAN-1933721US

PATIENT
  Sex: Male

DRUGS (10)
  1. TRIATEC [Concomitant]
     Dosage: 10 MG
     Route: 065
  2. CEFTAROLINE FOSAMIL - BP [Suspect]
     Active Substance: CEFTAROLINE FOSAMIL
     Indication: PNEUMONITIS
     Dosage: 1 DF, QD
     Route: 042
     Dates: start: 20190608, end: 20190618
  3. PANTORC [Concomitant]
     Active Substance: PANTOPRAZOLE SODIUM
     Dosage: 40 MG
     Route: 065
  4. SOLDESAM [Concomitant]
     Active Substance: DEXAMETHASONE
     Route: 065
  5. FLUIMUCIL [Concomitant]
     Active Substance: ACETYLCYSTEINE
     Dosage: 300 MG/3ML
     Route: 065
  6. TORVAST [Concomitant]
     Active Substance: ATORVASTATIN
     Dosage: 40 MG
     Route: 065
  7. KEPPRA [Concomitant]
     Active Substance: LEVETIRACETAM
     Dosage: 750 MG
     Route: 065
  8. FERLIXIT [Concomitant]
     Active Substance: SODIUM FERRIC GLUCONATE COMPLEX
     Dosage: 62.5
     Route: 065
  9. DOXAZOSIN [Concomitant]
     Active Substance: DOXAZOSIN MESYLATE
     Route: 065
  10. NORVASC [Concomitant]
     Active Substance: AMLODIPINE BESYLATE
     Dosage: 5 MG

REACTIONS (2)
  - Blood creatinine increased [Recovering/Resolving]
  - Off label use [Unknown]

NARRATIVE: CASE EVENT DATE: 20190618
